FAERS Safety Report 5399197-9 (Version None)
Quarter: 2007Q3

REPORT INFORMATION
  Report Type: 
  Country: None (occurrence: None)
  Receive Date: 20070727
  Receipt Date: 20070717
  Transmission Date: 20080115
  Serious: Yes (Life-Threatening, Hospitalization)
  Sender: FDA-Public Use
  Company Number: US-GENENTECH-244665

PATIENT
  Sex: Female
  Weight: 63.1 kg

DRUGS (9)
  1. BEVACIZUMAB [Suspect]
     Indication: COLORECTAL CANCER
     Dosage: 5 MG, BID
     Route: 042
     Dates: start: 20060503
  2. AG-013736 [Suspect]
     Indication: COLORECTAL CANCER
     Dosage: 5 MG, BID
     Route: 048
     Dates: start: 20060531
  3. FLUOROURACIL [Suspect]
     Indication: COLORECTAL CANCER
     Dosage: 3024 MG, QOW
     Route: 042
     Dates: start: 20060530
  4. OXALIPLATIN [Suspect]
     Indication: COLORECTAL CANCER
     Dosage: 142.8 MG, QOW
     Route: 042
     Dates: start: 20060530
  5. LISINOPRIL [Concomitant]
     Indication: DRUG USE FOR UNKNOWN INDICATION
     Route: 048
     Dates: start: 20060101
  6. METFORMIN HCL [Concomitant]
     Indication: DRUG USE FOR UNKNOWN INDICATION
     Route: 048
     Dates: start: 20060717
  7. PROTONIX [Concomitant]
     Indication: DRUG USE FOR UNKNOWN INDICATION
     Route: 048
     Dates: start: 20060717
  8. ASPIRIN [Concomitant]
     Indication: DRUG USE FOR UNKNOWN INDICATION
     Route: 048
     Dates: start: 20060719
  9. NORVASC [Concomitant]
     Indication: DRUG USE FOR UNKNOWN INDICATION
     Route: 048
     Dates: start: 20060613

REACTIONS (3)
  - ACIDOSIS [None]
  - LIVER FUNCTION TEST ABNORMAL [None]
  - RESPIRATORY FAILURE [None]
